FAERS Safety Report 18992227 (Version 1)
Quarter: 2021Q1

REPORT INFORMATION
  Report Type: Spontaneous
  Country: US (occurrence: US)
  Receive Date: 20210310
  Receipt Date: 20210310
  Transmission Date: 20210420
  Serious: Yes (Death, Hospitalization, Other)
  Sender: FDA-Public Use
  Company Number: US-UPSHER-SMITH LABORATORIES, LLC-2021USL00134

PATIENT
  Sex: Female

DRUGS (3)
  1. UNSPECIFIED MEDICATIONS [Suspect]
     Active Substance: UNSPECIFIED INGREDIENT
     Indication: PULMONARY FIBROSIS
     Dosage: UNK
     Dates: start: 201605, end: 201605
  2. UNSPECIFIED MEDICATIONS [Suspect]
     Active Substance: UNSPECIFIED INGREDIENT
     Indication: RESPIRATORY FAILURE
  3. AMIODARONE HYDROCHLORIDE. [Suspect]
     Active Substance: AMIODARONE HYDROCHLORIDE
     Indication: ATRIAL FIBRILLATION
     Dosage: UNK
     Route: 048
     Dates: start: 201311

REACTIONS (8)
  - Gait disturbance [Unknown]
  - Pulmonary fibrosis [Fatal]
  - Pulmonary toxicity [Unknown]
  - Chest pain [Unknown]
  - Asthenia [Unknown]
  - Off label use [Unknown]
  - Unevaluable event [Unknown]
  - Respiratory failure [Fatal]

NARRATIVE: CASE EVENT DATE: 201311
